FAERS Safety Report 18988293 (Version 1)
Quarter: 2021Q1

REPORT INFORMATION
  Report Type: Spontaneous
  Country: US (occurrence: US)
  Receive Date: 20210309
  Receipt Date: 20210309
  Transmission Date: 20210420
  Serious: No
  Sender: FDA-Public Use
  Company Number: US-MYLANLABS-2021M1013220

PATIENT
  Sex: Female

DRUGS (3)
  1. ATENOLOL TABLETS, USP [Suspect]
     Active Substance: ATENOLOL
     Indication: TACHYCARDIA
     Dosage: 1/2 TAB TWICE DAILY
     Route: 060
  2. MS CONTIN [Concomitant]
     Active Substance: MORPHINE SULFATE
     Dosage: WHEN NEEDED
  3. HYDROCODONE [Concomitant]
     Active Substance: HYDROCODONE
     Dosage: WHEN NEEDED

REACTIONS (7)
  - Malaise [Unknown]
  - Product taste abnormal [Unknown]
  - Product solubility abnormal [Unknown]
  - Gastric disorder [Unknown]
  - Product odour abnormal [Unknown]
  - Wrong technique in product usage process [Unknown]
  - Abdominal distension [Unknown]
